FAERS Safety Report 8392648-7 (Version None)
Quarter: 2012Q2

REPORT INFORMATION
  Report Type: 
  Country: None (occurrence: None)
  Receive Date: 20120529
  Receipt Date: 20120515
  Transmission Date: 20120825
  Serious: Yes (Hospitalization)
  Sender: FDA-Public Use
  Company Number: US-JNJFOC-20120411581

PATIENT
  Sex: Male
  Weight: 51.9 kg

DRUGS (7)
  1. INFLIXIMAB, RECOMBINANT [Suspect]
     Indication: INFLAMMATORY BOWEL DISEASE
     Route: 042
     Dates: start: 20051008, end: 20060101
  2. NEXIUM [Concomitant]
  3. ACETAMINOPHEN [Suspect]
  4. HUMIRA [Concomitant]
     Indication: INFLAMMATORY BOWEL DISEASE
     Dates: start: 20111202
  5. VITAMIN D [Concomitant]
  6. ACETAMINOPHEN [Suspect]
     Indication: PRODUCT USED FOR UNKNOWN INDICATION
  7. AMITRIPTYLINE HCL [Concomitant]

REACTIONS (2)
  - INTENTIONAL OVERDOSE [None]
  - MAJOR DEPRESSION [None]
